FAERS Safety Report 22306039 (Version 2)
Quarter: 2023Q2

REPORT INFORMATION
  Report Type: Spontaneous
  Country: SE (occurrence: SE)
  Receive Date: 20230511
  Receipt Date: 20230522
  Transmission Date: 20230722
  Serious: Yes (Other)
  Sender: FDA-Public Use
  Company Number: SE-002147023-NVSC2023SE092347

PATIENT
  Age: 64 Year
  Sex: Female

DRUGS (10)
  1. METFORMIN [Suspect]
     Active Substance: METFORMIN HYDROCHLORIDE
     Indication: Hyperglycaemia
     Dosage: 1000 MILLIGRAM, ONCE A DAY (500 MG, BID (CYCLE 47))
     Route: 065
  2. METFORMIN [Suspect]
     Active Substance: METFORMIN HYDROCHLORIDE
     Dosage: 500 MILLIGRAM, ONCE A DAY (500 MG, QD (CYCLE 37))
     Route: 065
  3. METFORMIN [Suspect]
     Active Substance: METFORMIN HYDROCHLORIDE
     Dosage: 1500 MILLIGRAM, ONCE A DAY (500 MG, TID (CYCLE 52))
     Route: 065
  4. METFORMIN [Suspect]
     Active Substance: METFORMIN HYDROCHLORIDE
     Dosage: 500 MG, BID (CYCLE 2)
     Route: 065
  5. ALPELISIB [Suspect]
     Active Substance: ALPELISIB
     Indication: Breast cancer
     Dosage: UNK
     Route: 065
  6. LETROZOLE [Suspect]
     Active Substance: LETROZOLE
     Indication: Breast cancer
     Dosage: UNK (FOR 2 YEARS)
     Route: 065
  7. REPAGLINIDE [Suspect]
     Active Substance: REPAGLINIDE
     Indication: Hyperglycaemia
     Dosage: 0.5 MILLIGRAM, ONCE A DAY (0.5 MG, QD)
     Route: 065
  8. SITAGLIPTIN [Suspect]
     Active Substance: SITAGLIPTIN
     Indication: Hyperglycaemia
     Dosage: 100 MILLIGRAM, ONCE A DAY (100 MG, QD (DPP-4 INHIBITOR))
     Route: 065
  9. TAMOXIFEN [Suspect]
     Active Substance: TAMOXIFEN
     Indication: Breast cancer
     Dosage: UNK (FOR 3 YEARS)
     Route: 065
  10. CAPECITABINE [Concomitant]
     Active Substance: CAPECITABINE
     Indication: Product used for unknown indication
     Dosage: UNK
     Route: 065

REACTIONS (9)
  - Breast cancer [Unknown]
  - Metastases to bone [Unknown]
  - Metastases to lung [Unknown]
  - Malignant neoplasm progression [Unknown]
  - Weight decreased [Unknown]
  - Hyperglycaemia [Unknown]
  - Nausea [Unknown]
  - Drug intolerance [Unknown]
  - Toxicity to various agents [Unknown]

NARRATIVE: CASE EVENT DATE: 20160301
